FAERS Safety Report 6241518-9 (Version None)
Quarter: 2009Q2

REPORT INFORMATION
  Report Type: 
  Country: None (occurrence: None)
  Receive Date: 20090623
  Receipt Date: 20040413
  Transmission Date: 20091009
  Serious: Yes (Hospitalization)
  Sender: FDA-Public Use
  Company Number: DE-ROCHE-364186

PATIENT
  Sex: Male

DRUGS (52)
  1. DACLIZUMAB [Suspect]
     Route: 042
     Dates: start: 20031006
  2. DACLIZUMAB [Suspect]
     Route: 042
     Dates: start: 20031020, end: 20031203
  3. MYCOPHENOLATE MOFETIL [Suspect]
     Dosage: DRUG REPORTED: MYCOPHENOLATMOFETIL
     Route: 048
     Dates: start: 20031007, end: 20031007
  4. MYCOPHENOLATE MOFETIL [Suspect]
     Dosage: DRUG REPORTED: MYCOPHENOLATMOFETIL
     Route: 048
     Dates: start: 20031008
  5. MYCOPHENOLATE MOFETIL [Suspect]
     Route: 048
     Dates: start: 20031011
  6. MYCOPHENOLATE MOFETIL [Suspect]
     Route: 048
     Dates: start: 20031012, end: 20040322
  7. MYCOPHENOLATE MOFETIL [Suspect]
     Route: 048
     Dates: start: 20040323, end: 20040324
  8. MYCOPHENOLATE MOFETIL [Suspect]
     Route: 048
     Dates: start: 20040404
  9. MYCOPHENOLATE MOFETIL [Suspect]
     Route: 048
     Dates: start: 20040405
  10. MYCOPHENOLATE MOFETIL [Suspect]
     Route: 048
     Dates: start: 20040701
  11. MYCOPHENOLATE MOFETIL [Suspect]
     Route: 048
     Dates: start: 20040705
  12. MYCOPHENOLATE MOFETIL [Suspect]
     Route: 048
     Dates: start: 20040713
  13. MYCOPHENOLATE MOFETIL [Suspect]
     Route: 048
     Dates: start: 20040824
  14. SIROLIMUS [Suspect]
     Route: 048
     Dates: start: 20031007
  15. SIROLIMUS [Suspect]
     Route: 048
     Dates: start: 20031010
  16. SIROLIMUS [Suspect]
     Route: 048
     Dates: start: 20031021
  17. SIROLIMUS [Suspect]
     Route: 048
     Dates: start: 20031022
  18. SIROLIMUS [Suspect]
     Route: 048
     Dates: start: 20031023, end: 20040322
  19. SIROLIMUS [Suspect]
     Route: 048
     Dates: start: 20040323, end: 20040709
  20. CYCLOSPORINE [Suspect]
     Dosage: DRUG REPORTED: CYCLOSPORINE
     Route: 048
     Dates: start: 20040824, end: 20040829
  21. CYCLOSPORINE [Suspect]
     Dosage: DOSING AMOUNT REPORTED IN GRAM BUT CAPTURED AS MG AS IT SEEMS TO BE A VERY HIGH DOSE.
     Route: 048
     Dates: start: 20040830
  22. CYCLOSPORINE [Suspect]
     Route: 048
     Dates: start: 20040831
  23. CYCLOSPORINE [Suspect]
     Route: 048
     Dates: start: 20040902
  24. CYCLOSPORINE [Suspect]
     Route: 048
     Dates: start: 20050407
  25. CYCLOSPORINE [Suspect]
     Route: 048
     Dates: start: 20050712
  26. TACROLIMUS [Suspect]
     Route: 048
     Dates: start: 20040709, end: 20040825
  27. METHYLPREDNISOLONE [Suspect]
     Route: 042
     Dates: start: 20031006, end: 20031010
  28. METHYLPREDNISOLONE [Suspect]
     Route: 048
     Dates: start: 20030304, end: 20031005
  29. METHYLPREDNISOLONE [Suspect]
     Route: 048
     Dates: start: 20031011, end: 20040219
  30. METHYLPREDNISOLONE [Suspect]
     Route: 048
     Dates: start: 20040220, end: 20040311
  31. PRAVASTATIN SODIUM [Concomitant]
     Dosage: STRENGTH: 20.
     Route: 048
     Dates: start: 20031008
  32. VESDIL [Concomitant]
     Route: 048
     Dates: start: 20031019
  33. VESDIL [Concomitant]
     Route: 048
     Dates: start: 20031021, end: 20040323
  34. VESDIL [Concomitant]
     Route: 048
     Dates: start: 20040401, end: 20040423
  35. VESDIL [Concomitant]
     Route: 048
     Dates: end: 20040701
  36. BELOC-ZOK [Concomitant]
     Dosage: TWO DOSEFORM PER DAY, ONE IN THE MORNING, ONE IN THE EVENING.
  37. ACETYLSALICYLIC ACID [Concomitant]
     Dosage: DRUG REPORTED: ACETYL SALICYL ACID
     Route: 048
     Dates: start: 20031011
  38. AMLODIPINE [Concomitant]
     Route: 048
     Dates: start: 20031118, end: 20040323
  39. AMLODIPINE [Concomitant]
     Route: 048
     Dates: start: 20040826, end: 20050110
  40. AMLODIPINE [Concomitant]
     Route: 048
     Dates: start: 20050407
  41. CIPROFLOXACIN [Concomitant]
     Route: 048
     Dates: start: 20031020, end: 20031023
  42. COTRIM [Concomitant]
     Route: 048
     Dates: start: 20031017, end: 20040219
  43. DARBEPOETIN ALFA [Concomitant]
     Route: 058
     Dates: start: 20031015, end: 20031027
  44. DARBEPOETIN ALFA [Concomitant]
     Route: 058
     Dates: start: 20040709, end: 20040728
  45. FOSFOMYCIN [Concomitant]
     Route: 042
     Dates: start: 20031006, end: 20031009
  46. GANCICLOVIR [Concomitant]
     Route: 048
     Dates: start: 20031008
  47. GANCICLOVIR [Concomitant]
     Route: 048
     Dates: start: 20031014, end: 20040109
  48. METOPROLOL SUCCINATE [Concomitant]
     Route: 048
     Dates: start: 20031008, end: 20040323
  49. METOPROLOL SUCCINATE [Concomitant]
     Route: 048
     Dates: start: 20040325
  50. METOPROLOL SUCCINATE [Concomitant]
     Route: 048
     Dates: start: 20040327
  51. METOPROLOL SUCCINATE [Concomitant]
     Route: 048
     Dates: start: 20040701
  52. DOXAZOSIN MESYLATE [Concomitant]
     Route: 048

REACTIONS (3)
  - CYTOMEGALOVIRUS INFECTION [None]
  - GASTRIC ULCER [None]
  - GASTRITIS [None]
